FAERS Safety Report 8175088-5 (Version None)
Quarter: 2012Q1

REPORT INFORMATION
  Report Type: 
  Country: None (occurrence: None)
  Receive Date: 20120229
  Receipt Date: 20120222
  Transmission Date: 20120608
  Serious: Yes (Life-Threatening, Hospitalization, Other)
  Sender: FDA-Public Use
  Company Number: PHHY2012JP006817

PATIENT
  Age: 52 Year
  Sex: Male
  Weight: 60 kg

DRUGS (9)
  1. PREDNISOLONE [Concomitant]
     Dosage: 12.5 MG, UNK
  2. ONEALFA [Concomitant]
     Route: 048
  3. CALCIUM [Concomitant]
  4. PREDNISOLONE [Concomitant]
     Dosage: 60 MG, UNK
  5. RABEPRAZOLE SODIUM [Concomitant]
     Route: 048
  6. EXJADE [Suspect]
     Indication: IRON OVERLOAD
     Dosage: 500 MG, DAILY
     Route: 048
     Dates: start: 20120106, end: 20120118
  7. GLAKAY [Concomitant]
     Route: 048
  8. EXJADE [Suspect]
     Dosage: 500 MG, DAILY
     Route: 048
     Dates: start: 20120120
  9. NEORAL [Suspect]
     Indication: MYELODYSPLASTIC SYNDROME
     Dosage: 125 MG, DAILY
     Route: 048

REACTIONS (16)
  - STEVENS-JOHNSON SYNDROME [None]
  - PYREXIA [None]
  - RASH [None]
  - PULMONARY OEDEMA [None]
  - BLOOD LACTATE DEHYDROGENASE INCREASED [None]
  - SWELLING FACE [None]
  - DISSEMINATED INTRAVASCULAR COAGULATION [None]
  - FIBRIN D DIMER INCREASED [None]
  - PLATELET COUNT DECREASED [None]
  - HYPOTENSION [None]
  - ORAL MUCOSA EROSION [None]
  - SKIN MASS [None]
  - BLOOD BLISTER [None]
  - LUNG DISORDER [None]
  - DRUG ERUPTION [None]
  - PNEUMONIA [None]
